FAERS Safety Report 6698294-5 (Version None)
Quarter: 2010Q2

REPORT INFORMATION
  Report Type: 
  Country: None (occurrence: None)
  Receive Date: 20100427
  Receipt Date: 20100416
  Transmission Date: 20101027
  Serious: Yes (Death)
  Sender: FDA-Public Use
  Company Number: JP-JNJFOC-20100406008

PATIENT
  Age: 29 Year
  Sex: Male

DRUGS (3)
  1. REMICADE [Suspect]
     Indication: CROHN'S DISEASE
     Dosage: 30TH INFUSION
     Route: 042
  2. REMICADE [Suspect]
     Dosage: 28 INFUSIOINS ON UNREPORTED DATES
     Route: 042
  3. REMICADE [Suspect]
     Route: 042

REACTIONS (1)
  - DEATH [None]
